FAERS Safety Report 5131525-1 (Version None)
Quarter: 2006Q4

REPORT INFORMATION
  Report Type: 
  Country: None (occurrence: None)
  Receive Date: 20061016
  Receipt Date: 20061004
  Transmission Date: 20070319
  Serious: Yes (Death)
  Sender: FDA-Public Use
  Company Number: 2006121954

PATIENT
  Age: 85 Year
  Sex: Female

DRUGS (6)
  1. NORVASC [Suspect]
     Indication: HYPERTENSION
     Dosage: 5 MG (5 MG, 1 IN 1 D); ORAL
     Route: 048
     Dates: start: 20010101
  2. DUXIL (ALMITRINE DIMESILATE, RAUBASINE) [Concomitant]
  3. VASTAREL (TRIMETAZIDINE HYDROCHLORIDE) [Concomitant]
  4. ORGANIC NITRATES [Concomitant]
  5. ASPOCID  (ACETYLSALICYLIC ACID) [Concomitant]
  6. LIPITOR [Concomitant]

REACTIONS (1)
  - CEREBRAL HAEMORRHAGE [None]
